FAERS Safety Report 13798997 (Version 1)
Quarter: 2017Q3

REPORT INFORMATION
  Report Type: Spontaneous
  Country: US (occurrence: US)
  Receive Date: 20170727
  Receipt Date: 20170727
  Transmission Date: 20171127
  Serious: No
  Sender: FDA-Public Use
  Company Number: US-JNJFOC-20170607012

PATIENT
  Age: 60 Year
  Sex: Female
  Weight: 74 kg

DRUGS (12)
  1. BENADRYL [Suspect]
     Active Substance: DIPHENHYDRAMINE HYDROCHLORIDE
     Indication: PRURITUS
     Dosage: TID PRN, AS NEEDED
     Route: 048
     Dates: start: 201705
  2. BENADRYL [Suspect]
     Active Substance: DIPHENHYDRAMINE HYDROCHLORIDE
     Indication: SWELLING
     Dosage: TID PRN, AS NEEDED
     Route: 048
     Dates: start: 201705
  3. PEPCID [Suspect]
     Active Substance: FAMOTIDINE
     Indication: PRURITUS
     Dosage: QD
     Route: 048
     Dates: start: 201705
  4. PREDNISONE. [Concomitant]
     Active Substance: PREDNISONE
     Indication: THERMAL BURN
     Dosage: QD
     Route: 048
     Dates: start: 201705
  5. PEPCID [Suspect]
     Active Substance: FAMOTIDINE
     Indication: HYPERSENSITIVITY
     Dosage: QD
     Route: 048
     Dates: start: 201705
  6. PEPCID [Suspect]
     Active Substance: FAMOTIDINE
     Indication: THERMAL BURN
     Dosage: QD
     Route: 048
     Dates: start: 201705
  7. PREDNISONE. [Concomitant]
     Active Substance: PREDNISONE
     Indication: PRURITUS
     Dosage: QD
     Route: 048
     Dates: start: 201705
  8. PEPCID [Suspect]
     Active Substance: FAMOTIDINE
     Indication: SWELLING
     Dosage: QD
     Route: 048
     Dates: start: 201705
  9. PREDNISONE. [Concomitant]
     Active Substance: PREDNISONE
     Indication: HYPERSENSITIVITY
     Dosage: QD
     Route: 048
     Dates: start: 201705
  10. BENADRYL [Suspect]
     Active Substance: DIPHENHYDRAMINE HYDROCHLORIDE
     Indication: HYPERSENSITIVITY
     Dosage: TID PRN, AS NEEDED
     Route: 048
     Dates: start: 201705
  11. PREDNISONE. [Concomitant]
     Active Substance: PREDNISONE
     Indication: SWELLING
     Dosage: QD
     Route: 048
     Dates: start: 201705
  12. BENADRYL [Suspect]
     Active Substance: DIPHENHYDRAMINE HYDROCHLORIDE
     Indication: THERMAL BURN
     Dosage: TID PRN, AS NEEDED
     Route: 048
     Dates: start: 201705

REACTIONS (3)
  - Product use in unapproved indication [Unknown]
  - Off label use [Unknown]
  - Therapeutic response unexpected [Unknown]

NARRATIVE: CASE EVENT DATE: 201705
